FAERS Safety Report 5975744-0 (Version None)
Quarter: 2008Q4

REPORT INFORMATION
  Report Type: 
  Country: None (occurrence: None)
  Receive Date: 20081124
  Receipt Date: 20080129
  Transmission Date: 20090506
  Serious: Yes (Other)
  Sender: FDA-Public Use
  Company Number: US-WYE-H02366908

PATIENT
  Age: 20 Year
  Sex: Male
  Weight: 94.6 kg

DRUGS (11)
  1. ZOSYN [Suspect]
     Indication: PNEUMONIA ASPIRATION
     Dosage: 3.375 G 1X PER 6 HR, INTRAVENOUS
     Route: 042
     Dates: start: 20080123, end: 20080129
  2. KEPPRA [Concomitant]
  3. DILANTIN [Concomitant]
  4. TRILEPTAL [Concomitant]
  5. DIAZEPAM [Concomitant]
  6. LOVENOX [Concomitant]
  7. ACETAMINOPHEN [Concomitant]
  8. NEXIUM [Concomitant]
  9. XOPENEX [Concomitant]
  10. ATIVAN [Concomitant]
  11. LOPRESSOR (METOPROLOL TARTRATE) [Concomitant]

REACTIONS (2)
  - ALANINE AMINOTRANSFERASE INCREASED [None]
  - ASPARTATE AMINOTRANSFERASE INCREASED [None]
